FAERS Safety Report 4797297-5 (Version None)
Quarter: 2005Q4

REPORT INFORMATION
  Report Type: 
  Country: None (occurrence: None)
  Receive Date: 20051013
  Receipt Date: 20051010
  Transmission Date: 20060501
  Serious: Yes (Life-Threatening, Hospitalization)
  Sender: FDA-Public Use
  Company Number: ES-GLAXOSMITHKLINE-B0396893A

PATIENT
  Age: 29 Year
  Sex: Female

DRUGS (6)
  1. AUGMENTIN '125' [Suspect]
     Indication: RESPIRATORY DISORDER
     Dosage: 1G THREE TIMES PER DAY
     Route: 042
     Dates: start: 20050826, end: 20050830
  2. AUGMENTIN '125' [Suspect]
     Dosage: 500MG THREE TIMES PER DAY
     Route: 048
     Dates: start: 20050822, end: 20050825
  3. PRIMPERAN INJ [Suspect]
     Dosage: 10MG PER DAY
     Dates: start: 20050826, end: 20050826
  4. FLUIMUCIL [Suspect]
     Indication: RESPIRATORY DISORDER
     Dosage: 100MG THREE TIMES PER DAY
     Route: 048
     Dates: start: 20050822
  5. VENTOLIN [Suspect]
     Indication: RESPIRATORY DISORDER
     Dosage: 200MCG THREE TIMES PER DAY
     Route: 055
     Dates: start: 20050822
  6. ATROVENT [Suspect]
     Indication: RESPIRATORY DISORDER
     Dosage: 40MCG THREE TIMES PER DAY
     Route: 055
     Dates: start: 20050822

REACTIONS (1)
  - HEPATITIS [None]
